FAERS Safety Report 16641910 (Version 2)
Quarter: 2019Q3

REPORT INFORMATION
  Report Type: Spontaneous
  Country: JP (occurrence: JP)
  Receive Date: 20190729
  Receipt Date: 20190816
  Transmission Date: 20191004
  Serious: Yes (Other)
  Sender: FDA-Public Use
  Company Number: JP-PFIZER INC-2019313682

PATIENT
  Age: 67 Year
  Sex: Female

DRUGS (2)
  1. AVASTIN [Suspect]
     Active Substance: BEVACIZUMAB
     Dosage: UNK
  2. PACLITAXEL 30MG/5ML HOSPIRA [Suspect]
     Active Substance: PACLITAXEL
     Indication: BREAST CANCER FEMALE
     Dosage: 100 MG, DAILY
     Dates: start: 20190315

REACTIONS (4)
  - Neoplasm progression [Unknown]
  - Empyema [Recovered/Resolved]
  - Tinnitus [Recovered/Resolved]
  - Deafness [Recovered/Resolved]
